FAERS Safety Report 9867713 (Version 1)
Quarter: 2014Q1

REPORT INFORMATION
  Report Type: Spontaneous
  Country: CA (occurrence: CA)
  Receive Date: 20140204
  Receipt Date: 20140204
  Transmission Date: 20141002
  Serious: Yes (Other)
  Sender: FDA-Public Use
  Company Number: CA-B.I. PHARMACEUTICALS,INC./RIDGEFIELD-2014-BI-04419CN

PATIENT
  Age: 57 Year
  Sex: Female

DRUGS (6)
  1. PRADAX [Suspect]
     Indication: PRODUCT USED FOR UNKNOWN INDICATION
     Dosage: 220 MG
     Route: 048
  2. PRADAX [Suspect]
     Dosage: 300 MG
     Route: 048
  3. ASA [Concomitant]
  4. CRESTOR [Concomitant]
  5. HYDROCHLOROTHIAZIDE [Concomitant]
  6. RAMIPRIL [Concomitant]

REACTIONS (4)
  - Burning sensation [Recovered/Resolved]
  - Haematochezia [Recovered/Resolved]
  - Intestinal haemorrhage [Recovered/Resolved]
  - Rectal haemorrhage [Recovered/Resolved]
